FAERS Safety Report 10734950 (Version 2)
Quarter: 2016Q1

REPORT INFORMATION
  Report Type: Report from Study
  Country: US (occurrence: US)
  Receive Date: 20150123
  Receipt Date: 20160115
  Transmission Date: 20160525
  Serious: Yes (Other)
  Sender: FDA-Public Use
  Company Number: US-GILEAD-2015-0133021

PATIENT
  Age: 57 Year
  Sex: Female

DRUGS (2)
  1. ATENOLOL. [Concomitant]
     Active Substance: ATENOLOL
     Indication: HYPERTENSION
     Dosage: UNK
     Route: 048
  2. LEDIPASVIR/SOFOSBUVIR [Suspect]
     Active Substance: LEDIPASVIR\SOFOSBUVIR
     Indication: CHRONIC HEPATITIS C
     Dosage: 1 DF, QD
     Route: 048
     Dates: start: 20141212, end: 20150228

REACTIONS (12)
  - Hypertension [Recovering/Resolving]
  - Weight decreased [Unknown]
  - Therapeutic response unexpected [Recovered/Resolved]
  - Muscle spasms [Unknown]
  - Breast cancer [Unknown]
  - Anxiety [Unknown]
  - Bradycardia [Recovered/Resolved]
  - Cyst [Unknown]
  - Pain in extremity [Unknown]
  - Erythema [Unknown]
  - Blood glucose increased [Recovering/Resolving]
  - Decreased appetite [Unknown]

NARRATIVE: CASE EVENT DATE: 201412
